FAERS Safety Report 8461762-X (Version None)
Quarter: 2012Q2

REPORT INFORMATION
  Report Type: 
  Country: None (occurrence: None)
  Receive Date: 20120625
  Receipt Date: 20120619
  Transmission Date: 20120825
  Serious: No
  Sender: FDA-Public Use
  Company Number: 2012SP001731

PATIENT
  Age: 19 Year
  Sex: Female

DRUGS (7)
  1. LATUDA [Suspect]
     Indication: PRODUCT USED FOR UNKNOWN INDICATION
     Route: 048
     Dates: start: 20120427, end: 20120501
  2. LATUDA [Suspect]
     Route: 048
     Dates: start: 20120521, end: 20120526
  3. LATUDA [Suspect]
     Route: 048
     Dates: start: 20120527, end: 20120602
  4. BENADRYL [Concomitant]
     Indication: INSOMNIA
  5. LATUDA [Suspect]
     Route: 048
     Dates: start: 20120519, end: 20120521
  6. METFORMIN HCL [Concomitant]
     Indication: POLYCYSTIC OVARIES
  7. ABILIFY [Concomitant]
     Indication: PRODUCT USED FOR UNKNOWN INDICATION

REACTIONS (6)
  - DRUG INEFFECTIVE [None]
  - ABNORMAL BEHAVIOUR [None]
  - BALANCE DISORDER [None]
  - SENSATION OF PRESSURE [None]
  - DYSKINESIA [None]
  - URTICARIA [None]
